FAERS Safety Report 9139856 (Version 2)
Quarter: 2013Q2

REPORT INFORMATION
  Report Type: Spontaneous
  Country: ES (occurrence: ES)
  Receive Date: 20130305
  Receipt Date: 20130410
  Transmission Date: 20140414
  Serious: Yes (Other)
  Sender: FDA-Public Use
  Company Number: ES-PFIZER INC-2013071925

PATIENT
  Age: 47 Year
  Sex: Male

DRUGS (1)
  1. MORPHINE SULFATE [Suspect]
     Indication: LYMPHOMA
     Dosage: 70 MG, 2X/DAY
     Route: 048
     Dates: start: 2012, end: 20120506

REACTIONS (1)
  - Ileus paralytic [Recovered/Resolved]
